FAERS Safety Report 12095749 (Version 2)
Quarter: 2016Q2

REPORT INFORMATION
  Report Type: Spontaneous
  Country: US (occurrence: US)
  Receive Date: 20160220
  Receipt Date: 20160401
  Transmission Date: 20160815
  Serious: No
  Sender: FDA-Public Use
  Company Number: US-AUROBINDO-AUR-APL-2015-07226

PATIENT

DRUGS (2)
  1. DULOXETINE 30 MG [Suspect]
     Active Substance: DULOXETINE
     Indication: PRODUCT USED FOR UNKNOWN INDICATION
     Dosage: 30 MG, TWO TIMES A DAY
     Route: 065
     Dates: start: 20150129, end: 20150517
  2. DULOXETINE 30 MG [Suspect]
     Active Substance: DULOXETINE
     Dosage: 30 UNK, UNK
     Route: 065
     Dates: start: 20150523, end: 20150620

REACTIONS (2)
  - Drug ineffective [Unknown]
  - Product substitution issue [Unknown]
